FAERS Safety Report 8922720 (Version 16)
Quarter: 2019Q2

REPORT INFORMATION
  Report Type: Report from Study
  Country: CA (occurrence: CA)
  Receive Date: 20121123
  Receipt Date: 20190415
  Transmission Date: 20190711
  Serious: Yes (Other)
  Sender: FDA-Public Use
  Company Number: CA-ROCHE-1157438

PATIENT
  Age: 62 Year
  Sex: Female
  Weight: 74 kg

DRUGS (12)
  1. ACTEMRA [Suspect]
     Active Substance: TOCILIZUMAB
     Indication: RHEUMATOID ARTHRITIS
     Route: 042
     Dates: start: 20120921
  2. ASA [Concomitant]
     Active Substance: ASPIRIN
     Route: 065
  3. ROBITUSSIN (GUAIFENESIN) [Concomitant]
     Active Substance: GUAIFENESIN
     Indication: NASOPHARYNGITIS
  4. RAMIPRIL. [Concomitant]
     Active Substance: RAMIPRIL
  5. ZOPICLONE [Concomitant]
     Active Substance: ZOPICLONE
     Route: 048
  6. GRAVOL NATURAL SOURCE [Concomitant]
  7. HYDROXYCHLOROQUINE [Concomitant]
     Active Substance: HYDROXYCHLOROQUINE
  8. LORAZEPAM. [Concomitant]
     Active Substance: LORAZEPAM
  9. GRAVOL GINGER [Concomitant]
     Active Substance: GINGER
     Indication: NAUSEA
  10. CRESTOR [Concomitant]
     Active Substance: ROSUVASTATIN CALCIUM
     Route: 065
  11. NEXIUM [Concomitant]
     Active Substance: ESOMEPRAZOLE MAGNESIUM
     Route: 048
  12. VENLAFAXINE [Concomitant]
     Active Substance: VENLAFAXINE HYDROCHLORIDE

REACTIONS (20)
  - Paraesthesia [Recovered/Resolved]
  - White blood cells urine positive [Unknown]
  - Diarrhoea [Recovered/Resolved]
  - Deafness unilateral [Unknown]
  - Urinary retention [Unknown]
  - Vomiting [Recovering/Resolving]
  - Influenza [Unknown]
  - Skin laceration [Not Recovered/Not Resolved]
  - Hypoaesthesia [Recovered/Resolved]
  - Influenza like illness [Recovered/Resolved]
  - Cough [Recovering/Resolving]
  - Blood urine present [Unknown]
  - Facial paralysis [Unknown]
  - Stress [Recovering/Resolving]
  - Blood pressure increased [Unknown]
  - Pain [Not Recovered/Not Resolved]
  - Rhinorrhoea [Recovering/Resolving]
  - Red blood cells urine positive [Unknown]
  - Bilirubin urine present [Unknown]
  - Nasopharyngitis [Recovering/Resolving]

NARRATIVE: CASE EVENT DATE: 201211
